FAERS Safety Report 5263934-4 (Version None)
Quarter: 2007Q1

REPORT INFORMATION
  Report Type: 
  Country: None (occurrence: None)
  Receive Date: 20070313
  Receipt Date: 20070302
  Transmission Date: 20070707
  Serious: Yes (Other)
  Sender: FDA-Public Use
  Company Number: BR-JNJFOC-20070301151

PATIENT
  Age: 40 Year
  Sex: Male
  Weight: 64 kg

DRUGS (4)
  1. HALDOL [Suspect]
     Indication: PSYCHOTIC DISORDER
     Dosage: SPORADIC USE
     Route: 048
  2. DIAZEPAM [Concomitant]
     Indication: ANXIETY
     Route: 048
  3. FENERGAN [Concomitant]
     Indication: PROPHYLAXIS
     Route: 048
  4. FENERGAN [Concomitant]
     Indication: SEDATIVE THERAPY
     Route: 048

REACTIONS (2)
  - DIABETES MELLITUS [None]
  - WRONG TECHNIQUE IN DRUG USAGE PROCESS [None]
